FAERS Safety Report 23503457 (Version 10)
Quarter: 2025Q1

REPORT INFORMATION
  Report Type: Report from Study
  Country: CA (occurrence: CA)
  Receive Date: 20240208
  Receipt Date: 20250218
  Transmission Date: 20250408
  Serious: Yes (Hospitalization, Other)
  Sender: GLAXOSMITHKLINE
  Company Number: CA-GLAXOSMITHKLINE-CA2023AMR063835

PATIENT

DRUGS (13)
  1. MEPOLIZUMAB [Suspect]
     Active Substance: MEPOLIZUMAB
     Indication: Asthma
     Dosage: 100 MG, Q4W
     Route: 058
     Dates: start: 20191204
  2. MEPOLIZUMAB [Suspect]
     Active Substance: MEPOLIZUMAB
     Dosage: 100 MG, Q4W
     Route: 058
  3. MEPOLIZUMAB [Suspect]
     Active Substance: MEPOLIZUMAB
     Dosage: 100 MG, Q4W
     Route: 058
  4. MEPOLIZUMAB [Suspect]
     Active Substance: MEPOLIZUMAB
     Dosage: 100 MG, Q4W
     Route: 058
  5. MEPOLIZUMAB [Suspect]
     Active Substance: MEPOLIZUMAB
     Dosage: 100 MG, Q4W
     Route: 058
  6. MEPOLIZUMAB [Suspect]
     Active Substance: MEPOLIZUMAB
     Dosage: 100 MG, Q4W
     Route: 058
  7. MEPOLIZUMAB [Suspect]
     Active Substance: MEPOLIZUMAB
     Indication: Asthma
     Dosage: 100 MG, Q4W
     Route: 058
  8. MEPOLIZUMAB [Suspect]
     Active Substance: MEPOLIZUMAB
  9. MEPOLIZUMAB [Suspect]
     Active Substance: MEPOLIZUMAB
     Indication: Asthma
     Dosage: 100 MG, Q4W
     Route: 058
  10. MEPOLIZUMAB [Suspect]
     Active Substance: MEPOLIZUMAB
     Indication: Asthma
     Dosage: 100 MG, Q4W
     Route: 058
  11. SYMBICORT [Concomitant]
     Active Substance: BUDESONIDE\FORMOTEROL FUMARATE DIHYDRATE
     Indication: Product used for unknown indication
     Dosage: UNK UNK, BID
  12. VENTOLIN [Concomitant]
     Active Substance: ALBUTEROL SULFATE
     Indication: Product used for unknown indication
  13. PULMICORT TURBUHALER [Concomitant]
     Active Substance: BUDESONIDE
     Indication: Product used for unknown indication
     Dosage: UNK UNK, QD, NASAL RINSES

REACTIONS (29)
  - Fall [Unknown]
  - Rib fracture [Unknown]
  - Lung perforation [Unknown]
  - Pneumonia [Unknown]
  - Deafness [Unknown]
  - Lung disorder [Unknown]
  - Condition aggravated [Unknown]
  - Blood pressure decreased [Recovering/Resolving]
  - Weight decreased [Unknown]
  - Anxiety [Unknown]
  - Asthma [Not Recovered/Not Resolved]
  - Aphonia [Unknown]
  - Oropharyngeal pain [Unknown]
  - Illness [Unknown]
  - Multiple allergies [Unknown]
  - Nasopharyngitis [Not Recovered/Not Resolved]
  - Viral infection [Unknown]
  - Ear discomfort [Unknown]
  - Pain [Unknown]
  - Ligament sprain [Not Recovered/Not Resolved]
  - Ear infection [Unknown]
  - Foot fracture [Recovering/Resolving]
  - Injection site pain [Unknown]
  - Discomfort [Unknown]
  - Influenza [Recovering/Resolving]
  - Secretion discharge [Not Recovered/Not Resolved]
  - Sinus disorder [Recovering/Resolving]
  - Hypersensitivity [Unknown]
  - Inappropriate schedule of product administration [Unknown]

NARRATIVE: CASE EVENT DATE: 20230612
